FAERS Safety Report 6416373-4 (Version None)
Quarter: 2009Q4

REPORT INFORMATION
  Report Type: 
  Country: None (occurrence: None)
  Receive Date: 20091023
  Receipt Date: 20091012
  Transmission Date: 20100525
  Serious: Yes (Other)
  Sender: FDA-Public Use
  Company Number: FR-1170993

PATIENT
  Age: 47 Year
  Sex: Male

DRUGS (1)
  1. ALMIDE           (LODOXAMIDE TROMETHAMINE) 0.1 % OPHTHALMIC SOLUTION L [Suspect]
     Dosage: OPHTHALMIC
     Route: 047

REACTIONS (5)
  - ABNORMAL SENSATION IN EYE [None]
  - EYE BURNS [None]
  - EYE IRRITATION [None]
  - EYELID FUNCTION DISORDER [None]
  - VISION BLURRED [None]
